FAERS Safety Report 6938746-3 (Version None)
Quarter: 2010Q3

REPORT INFORMATION
  Report Type: 
  Country: None (occurrence: None)
  Receive Date: 20100820
  Receipt Date: 20100804
  Transmission Date: 20110219
  Serious: Yes (Hospitalization)
  Sender: FDA-Public Use
  Company Number: JPI-P-011742

PATIENT
  Age: 77 Year
  Sex: Female
  Weight: 80.2867 kg

DRUGS (4)
  1. XYREM [Suspect]
     Indication: HYPERSOMNIA
     Dosage: 2 IN 1 D, ORAL, 2.5 GM FIRST DOSE/1 GM SECOND DOSE, ORAL
     Route: 048
     Dates: end: 20100701
  2. XYREM [Suspect]
     Indication: SLEEP APNOEA SYNDROME
     Dosage: 2 IN 1 D, ORAL, 2.5 GM FIRST DOSE/1 GM SECOND DOSE, ORAL
     Route: 048
     Dates: end: 20100701
  3. XYREM [Suspect]
     Indication: HYPERSOMNIA
     Dosage: 2 IN 1 D, ORAL, 2.5 GM FIRST DOSE/1 GM SECOND DOSE, ORAL
     Route: 048
     Dates: start: 20091201
  4. XYREM [Suspect]
     Indication: SLEEP APNOEA SYNDROME
     Dosage: 2 IN 1 D, ORAL, 2.5 GM FIRST DOSE/1 GM SECOND DOSE, ORAL
     Route: 048
     Dates: start: 20091201

REACTIONS (1)
  - CARDIAC FAILURE CONGESTIVE [None]
